FAERS Safety Report 19174586 (Version 1)
Quarter: 2021Q2

REPORT INFORMATION
  Report Type: Spontaneous
  Country: DE (occurrence: DE)
  Receive Date: 20210423
  Receipt Date: 20210423
  Transmission Date: 20210717
  Serious: Yes (Other)
  Sender: FDA-Public Use
  Company Number: NVSC2021DE082250

PATIENT
  Age: 67 Year
  Sex: Male

DRUGS (4)
  1. CARBOPLATIN. [Suspect]
     Active Substance: CARBOPLATIN
     Indication: HEAD AND NECK CANCER
     Dosage: (2?AUC DAY 1,8,15,22,29,36, REPEAT DAY 57)
     Route: 065
     Dates: start: 20200429, end: 202006
  2. CARBOPLATIN. [Suspect]
     Active Substance: CARBOPLATIN
     Dosage: UNK UNK, QW
     Route: 065
     Dates: start: 202006, end: 202008
  3. PACLITAXEL. [Suspect]
     Active Substance: PACLITAXEL
     Dosage: UNK UNK, QW
     Route: 065
     Dates: start: 202006, end: 202008
  4. PACLITAXEL. [Suspect]
     Active Substance: PACLITAXEL
     Indication: HEAD AND NECK CANCER
     Dosage: UNK (90 MILLIGRAM/SQ.METER, DAY 1,8,15,22,29,36, REPEAT DAY 57)
     Route: 065
     Dates: start: 20200429, end: 202006

REACTIONS (3)
  - Herpes zoster [Unknown]
  - Malignant neoplasm progression [Unknown]
  - Polyneuropathy [Unknown]

NARRATIVE: CASE EVENT DATE: 20201118
